FAERS Safety Report 20176188 (Version 1)
Quarter: 2021Q4

REPORT INFORMATION
  Report Type: Spontaneous
  Country: US (occurrence: US)
  Receive Date: 20211213
  Receipt Date: 20211213
  Transmission Date: 20220303
  Serious: No
  Sender: FDA-Public Use
  Company Number: US-009507513-2112USA000408

PATIENT
  Age: 54 Year
  Sex: Male
  Weight: 101 kg

DRUGS (9)
  1. ZERBAXA [Suspect]
     Active Substance: CEFTOLOZANE SULFATE\TAZOBACTAM SODIUM
     Indication: Pseudomonas infection
     Dosage: A 1-TIME 500/250 MG LOADING, ONCE
     Route: 042
  2. ZERBAXA [Suspect]
     Active Substance: CEFTOLOZANE SULFATE\TAZOBACTAM SODIUM
     Dosage: 100/50 MG, EVERY 8 HOURS
     Route: 042
  3. ZERBAXA [Suspect]
     Active Substance: CEFTOLOZANE SULFATE\TAZOBACTAM SODIUM
     Dosage: 1000/500 MG, THREE TIMES A WEEK
     Route: 042
  4. INVANZ [Concomitant]
     Active Substance: ERTAPENEM SODIUM
     Indication: Citrobacter infection
     Dosage: UNK
  5. INVANZ [Concomitant]
     Active Substance: ERTAPENEM SODIUM
     Indication: Wound infection
  6. PIPERACILLIN AND TAZOBACTAM [Concomitant]
     Active Substance: PIPERACILLIN SODIUM\TAZOBACTAM SODIUM
     Indication: Pseudomonas infection
     Dosage: UNK
  7. MEROPENEM [Concomitant]
     Active Substance: MEROPENEM
     Indication: Pseudomonas infection
     Dosage: UNK
  8. CIPROFLOXACIN [Concomitant]
     Active Substance: CIPROFLOXACIN
     Indication: Pseudomonas infection
     Dosage: UNK
  9. CEFTAZIDIME [Concomitant]
     Active Substance: CEFTAZIDIME
     Indication: Pseudomonas infection
     Dosage: UNK

REACTIONS (1)
  - Off label use [Unknown]
